FAERS Safety Report 15546905 (Version 1)
Quarter: 2018Q4

REPORT INFORMATION
  Report Type: Spontaneous
  Country: FR (occurrence: FR)
  Receive Date: 20181024
  Receipt Date: 20181024
  Transmission Date: 20190205
  Serious: Yes (Other)
  Sender: FDA-Public Use
  Company Number: FR-MYLANLABS-2018M1078446

PATIENT
  Age: 16 Year
  Sex: Male

DRUGS (3)
  1. IVABRADINE [Concomitant]
     Active Substance: IVABRADINE
     Indication: VENTRICULAR TACHYCARDIA
     Dosage: 0.09 MG/KG OR 5 MG TWICE DAILY
     Route: 065
  2. NADOLOL. [Suspect]
     Active Substance: NADOLOL
     Indication: VENTRICULAR TACHYCARDIA
     Route: 065
  3. FLECAINIDE [Suspect]
     Active Substance: FLECAINIDE
     Indication: VENTRICULAR TACHYCARDIA
     Dosage: 2.8 MG/KG OR 150 MG/DAY
     Route: 065

REACTIONS (2)
  - Fatigue [Unknown]
  - Drug ineffective [Unknown]
